FAERS Safety Report 5915406-9 (Version None)
Quarter: 2008Q4

REPORT INFORMATION
  Report Type: 
  Country: None (occurrence: None)
  Receive Date: 20081010
  Receipt Date: 20081003
  Transmission Date: 20090506
  Serious: Yes (Other)
  Sender: FDA-Public Use
  Company Number: US-GILEAD-2008-0018418

PATIENT
  Sex: Male

DRUGS (1)
  1. LETAIRIS [Suspect]
     Route: 048
     Dates: start: 20080812

REACTIONS (1)
  - HYPOKALAEMIA [None]
